FAERS Safety Report 7077763-2 (Version None)
Quarter: 2010Q4

REPORT INFORMATION
  Report Type: 
  Country: None (occurrence: None)
  Receive Date: 20101101
  Receipt Date: 20101019
  Transmission Date: 20110411
  Serious: Yes (Life-Threatening)
  Sender: FDA-Public Use
  Company Number: TR-MYLANLABS-2010S1019452

PATIENT
  Age: 76 Year
  Sex: Female

DRUGS (1)
  1. CIPROFLOXACIN [Suspect]
     Indication: OROPHARYNGEAL PAIN
     Route: 048

REACTIONS (2)
  - ASPIRATION [None]
  - BRONCHIAL OBSTRUCTION [None]
